APPROVED DRUG PRODUCT: LACOSAMIDE
Active Ingredient: LACOSAMIDE
Strength: 100MG
Dosage Form/Route: TABLET;ORAL
Application: A205237 | Product #002 | TE Code: AB
Applicant: SCIEGEN PHARMACEUTICALS INC
Approved: Mar 17, 2022 | RLD: No | RS: No | Type: RX